FAERS Safety Report 9015433 (Version 2)
Quarter: 2013Q4

REPORT INFORMATION
  Report Type: Spontaneous
  Country: DK (occurrence: DK)
  Receive Date: 20130116
  Receipt Date: 20131128
  Transmission Date: 20140711
  Serious: Yes (Life-Threatening)
  Sender: FDA-Public Use
  Company Number: DK-AMGEN-DNKSP2012079078

PATIENT
  Age: 61 Year
  Sex: Female
  Weight: 78 kg

DRUGS (3)
  1. HUMIRA [Concomitant]
     Indication: PSORIATIC ARTHROPATHY
     Dosage: 40 MG, WEEKLY
     Dates: start: 20100903, end: 20101110
  2. METHOTREXATE [Concomitant]
     Indication: PSORIATIC ARTHROPATHY
     Dosage: 20 MG, WEEKLY
     Dates: start: 20100903
  3. ENBREL [Suspect]
     Indication: PSORIATIC ARTHROPATHY
     Dosage: 50 MG, WEEKLY
     Route: 058
     Dates: start: 20110112, end: 20121122

REACTIONS (3)
  - Metastases to lymph nodes [Recovered/Resolved with Sequelae]
  - Malignant melanoma [Recovered/Resolved with Sequelae]
  - Metastases to nervous system [Recovered/Resolved with Sequelae]
